FAERS Safety Report 8767069 (Version 2)
Quarter: 2012Q4

REPORT INFORMATION
  Report Type: 
  Country: JP (occurrence: JP)
  Receive Date: 20120904
  Receipt Date: 20120924
  Transmission Date: 20130627
  Serious: No
  Sender: FDA-Public Use
  Company Number: JP-UCBSA-064642

PATIENT
  Age: 42 Year
  Sex: Female
  Weight: 62 kg

DRUGS (3)
  1. E KEPPRA [Suspect]
     Indication: EPILEPSY
     Route: 048
     Dates: start: 20120510, end: 20120514
  2. PLETAAL OD [Concomitant]
     Dosage: DAILY DOSE: 200MG
     Route: 048
     Dates: start: 20080710
  3. DEPAKENE R [Concomitant]
     Dosage: DAILY DOSE: 1600MG
     Route: 048
     Dates: start: 20081113

REACTIONS (3)
  - Pruritus [Recovered/Resolved]
  - Stomatitis [Recovered/Resolved]
  - Oropharyngeal pain [Recovered/Resolved]
